FAERS Safety Report 25014938 (Version 1)
Quarter: 2025Q1

REPORT INFORMATION
  Report Type: Spontaneous
  Country: US (occurrence: None)
  Receive Date: 20250226
  Receipt Date: 20250226
  Transmission Date: 20250408
  Serious: No
  Sender: FDA-CTU
  Company Number: None

PATIENT

DRUGS (1)
  1. ZIPRASIDONE [Suspect]
     Active Substance: ZIPRASIDONE
     Dosage: FREQUENCY : TWICE A DAY;?

REACTIONS (2)
  - Mania [None]
  - Drug ineffective [None]

NARRATIVE: CASE EVENT DATE: 20250225
